FAERS Safety Report 6074333-X (Version None)
Quarter: 2009Q1

REPORT INFORMATION
  Report Type: 
  Country: None (occurrence: None)
  Receive Date: 20090211
  Receipt Date: 20090204
  Transmission Date: 20090719
  Serious: No
  Sender: FDA-Public Use
  Company Number: US-B.I. PHARMACEUTICALS,INC./RIDGEFIELD-2009-BP-01453BP

PATIENT
  Sex: Female

DRUGS (4)
  1. ZANTAC 150 [Suspect]
     Indication: DYSPEPSIA
     Route: 048
     Dates: start: 20050101, end: 20050101
  2. ZANTAC 150 [Suspect]
     Dosage: 150MG
     Route: 048
     Dates: start: 20090204
  3. ADVAIR DISKUS 100/50 [Concomitant]
     Indication: BRONCHITIS
  4. DILTIAZEM [Concomitant]
     Indication: HYPERTENSION

REACTIONS (1)
  - TREMOR [None]
